FAERS Safety Report 5115619-2 (Version None)
Quarter: 2006Q3

REPORT INFORMATION
  Report Type: 
  Country: None (occurrence: None)
  Receive Date: 20060927
  Receipt Date: 20060914
  Transmission Date: 20061208
  Serious: Yes (Hospitalization, Other)
  Sender: FDA-Public Use
  Company Number: PHEH2006US11782

PATIENT
  Age: 80 Year
  Sex: Female

DRUGS (9)
  1. ZOMETA [Suspect]
     Indication: BREAST CANCER METASTATIC
     Dosage: 4 MG, ONCE/SINGLE
     Dates: start: 20060801, end: 20060801
  2. ACIPHEX [Concomitant]
     Indication: GASTROOESOPHAGEAL REFLUX DISEASE
     Dosage: 20 MG, QD
     Dates: start: 20050701
  3. TRAMADOL HCL [Concomitant]
     Dosage: 50 MG, TID, PRN
     Dates: start: 20050701
  4. HYDROCHLOROTHIAZDE TAB [Concomitant]
     Dosage: 25 MG, QD
     Dates: start: 20050701
  5. PLAVIX [Concomitant]
     Dosage: 75 MG, QD
     Dates: start: 20050701
  6. CELEBREX [Concomitant]
     Dosage: 200 MG, QD
     Dates: start: 20050701
  7. PERCOCET [Concomitant]
     Dosage: 100/650  PRN
     Dates: start: 20050701
  8. OXYCONTIN [Concomitant]
     Dosage: 10 MG, Q12H
     Dates: start: 20060601
  9. POTASSIUM [Concomitant]
     Dosage: 20 MEQ, QD
     Dates: start: 20060801

REACTIONS (24)
  - AORTIC VALVE SCLEROSIS [None]
  - ASTHENIA [None]
  - BLOOD ALBUMIN DECREASED [None]
  - BLOOD CALCIUM DECREASED [None]
  - BLOOD GLUCOSE INCREASED [None]
  - BLOOD POTASSIUM DECREASED [None]
  - CONFUSIONAL STATE [None]
  - DEHYDRATION [None]
  - DIARRHOEA [None]
  - HAEMATOCRIT DECREASED [None]
  - HAEMOGLOBIN DECREASED [None]
  - INFLUENZA LIKE ILLNESS [None]
  - LETHARGY [None]
  - NAUSEA [None]
  - OSTEOARTHRITIS [None]
  - OSTEOPOROSIS [None]
  - PAIN [None]
  - PLATELET COUNT DECREASED [None]
  - PULMONARY HYPERTENSION [None]
  - RED BLOOD CELL COUNT DECREASED [None]
  - TRICUSPID VALVE INCOMPETENCE [None]
  - VENTRICULAR HYPERTROPHY [None]
  - VOMITING [None]
  - WHITE BLOOD CELL COUNT DECREASED [None]
